FAERS Safety Report 8289628-9 (Version None)
Quarter: 2012Q2

REPORT INFORMATION
  Report Type: 
  Country: None (occurrence: None)
  Receive Date: 20120417
  Receipt Date: 20120410
  Transmission Date: 20120825
  Serious: Yes (Death, Hospitalization)
  Sender: FDA-Public Use
  Company Number: ES-CELGENEUS-144-50794-12031497

PATIENT

DRUGS (4)
  1. ONDANSETRON [Concomitant]
     Dosage: 24 MILLIGRAM
     Route: 065
     Dates: start: 20091130
  2. ALLOPURINOL [Concomitant]
     Dosage: 300 MILLIGRAM
     Route: 065
     Dates: start: 20091130
  3. EDEMOX [Concomitant]
     Indication: GLAUCOMA
     Dosage: 2 DROPS
     Route: 047
  4. VIDAZA [Suspect]
     Route: 065
     Dates: start: 20091130, end: 20091204

REACTIONS (2)
  - RESPIRATORY TRACT INFECTION [None]
  - ACUTE MYELOID LEUKAEMIA [None]
